FAERS Safety Report 24601377 (Version 1)
Quarter: 2024Q4

REPORT INFORMATION
  Report Type: Spontaneous
  Country: IT (occurrence: IT)
  Receive Date: 20241111
  Receipt Date: 20241111
  Transmission Date: 20250115
  Serious: Yes (Other)
  Sender: PFIZER
  Company Number: IT-002147023-NVSC2024IT206807

PATIENT
  Age: 15 Year
  Sex: Male

DRUGS (2)
  1. SIROLIMUS [Suspect]
     Active Substance: SIROLIMUS
     Dosage: UNK
     Route: 065
  2. CANAKINUMAB [Suspect]
     Active Substance: CANAKINUMAB
     Dosage: 10 MG/KG (EVERY TWO WEEKS)
     Route: 065

REACTIONS (2)
  - Interleukin level increased [Unknown]
  - Off label use [Unknown]
